FAERS Safety Report 6479898-1 (Version None)
Quarter: 2009Q4

REPORT INFORMATION
  Report Type: 
  Country: None (occurrence: None)
  Receive Date: 20091208
  Receipt Date: 20091103
  Transmission Date: 20100525
  Serious: Yes (Other)
  Sender: FDA-Public Use
  Company Number: AU-SANOFI-AVENTIS-2009SA000361

PATIENT
  Sex: Female

DRUGS (2)
  1. STILNOX [Suspect]
     Indication: STRESS
     Route: 048
     Dates: start: 20040101
  2. STILNOX [Suspect]
     Route: 048

REACTIONS (2)
  - DISSOCIATIVE DISORDER [None]
  - WITHDRAWAL SYNDROME [None]
